FAERS Safety Report 5652981-6 (Version None)
Quarter: 2008Q1

REPORT INFORMATION
  Report Type: 
  Country: None (occurrence: None)
  Receive Date: 20080306
  Receipt Date: 20080225
  Transmission Date: 20080703
  Serious: Yes (Hospitalization)
  Sender: FDA-Public Use
  Company Number: DE-AMGEN-US255645

PATIENT
  Sex: Female
  Weight: 24.7 kg

DRUGS (8)
  1. ENBREL [Suspect]
     Indication: JUVENILE ARTHRITIS
     Route: 058
     Dates: start: 20021029
  2. IMUREK [Suspect]
     Route: 048
  3. METHOTREXATE [Suspect]
     Indication: JUVENILE ARTHRITIS
     Route: 042
  4. METHOTREXATE [Suspect]
     Indication: POLYARTHRITIS
  5. BELOC ZOK [Concomitant]
     Route: 048
  6. ESIDRIX [Concomitant]
     Route: 065
  7. NORDITROPIN [Concomitant]
     Route: 058
  8. INDOMETHACIN [Concomitant]
     Dosage: UNKNOWN
     Route: 065

REACTIONS (2)
  - MYELODYSPLASTIC SYNDROME [None]
  - PANCYTOPENIA [None]
